FAERS Safety Report 15269908 (Version 1)
Quarter: 2018Q3

REPORT INFORMATION
  Report Type: Report from Study
  Country: GB (occurrence: GB)
  Receive Date: 20180813
  Receipt Date: 20180813
  Transmission Date: 20181010
  Serious: Yes (Other)
  Sender: FDA-Public Use
  Company Number: GB-PFIZER INC-2018322746

PATIENT
  Age: 17 Year
  Sex: Male

DRUGS (2)
  1. METHYLPREDNISOLONE. [Suspect]
     Active Substance: METHYLPREDNISOLONE
     Indication: APLASTIC ANAEMIA
     Dosage: 5 MG/KG, DAILY (HIGH?DOSE), (1 WEEK THEN TAILING TO ZERO OVER THE FOLLOWING 3 WEEKS)
  2. MERIEUX [Suspect]
     Active Substance: RABIES VACCINE\RABIES VIRUS STRAIN PM-1503-3M ANTIGEN (PROPIOLACTONE INACTIVATED)
     Indication: APLASTIC ANAEMIA
     Dosage: 1.5 VIALS/10 KG, DAILY

REACTIONS (1)
  - Osteonecrosis [Unknown]
